FAERS Safety Report 6112762-6 (Version None)
Quarter: 2009Q1

REPORT INFORMATION
  Report Type: 
  Country: None (occurrence: None)
  Receive Date: 20090310
  Receipt Date: 20090226
  Transmission Date: 20090719
  Serious: Yes (Other)
  Sender: FDA-Public Use
  Company Number: GXKR2009SG02152

PATIENT
  Age: 60 Year
  Sex: Female

DRUGS (4)
  1. ANAGRELIDE HCL [Suspect]
     Indication: ESSENTIAL THROMBOCYTHAEMIA
     Dosage: MAX DOSE 3 MG/DAY,
     Dates: end: 20050101
  2. HYDROXYUREA [Suspect]
     Indication: ESSENTIAL THROMBOCYTHAEMIA
     Dates: start: 20000801, end: 20050101
  3. INTERFERON [Suspect]
     Indication: ESSENTIAL THROMBOCYTHAEMIA
  4. ACETYLSALICYLIC ACID SRT [Concomitant]

REACTIONS (1)
  - ACUTE BIPHENOTYPIC LEUKAEMIA [None]
